FAERS Safety Report 4316906-8 (Version None)
Quarter: 2004Q1

REPORT INFORMATION
  Report Type: 
  Country: None (occurrence: None)
  Receive Date: 20040309
  Receipt Date: 20031229
  Transmission Date: 20041129
  Serious: Yes (Hospitalization)
  Sender: FDA-Public Use
  Company Number: A03200302529

PATIENT
  Age: 78 Year
  Sex: Female
  Weight: 54.8852 kg

DRUGS (11)
  1. ELOXATIN [Suspect]
     Indication: COLORECTAL CANCER
     Dosage: 200 MG Q3W - INTRAVENOUS NOS
     Route: 042
     Dates: start: 20030825, end: 20030825
  2. ELOXATIN [Suspect]
     Indication: METASTASES TO LIVER
     Dosage: 200 MG Q3W - INTRAVENOUS NOS
     Route: 042
     Dates: start: 20030825, end: 20030825
  3. GLYBURIDE [Concomitant]
  4. CAPECITABINE [Concomitant]
  5. CALCITONIN-SALMON [Concomitant]
  6. CITALOPRAM [Concomitant]
  7. ZOLPIDEM TARTRATE [Concomitant]
  8. WARFARIN SODIUM [Concomitant]
  9. LANSOPRAZOLE [Concomitant]
  10. GRANISETRON [Concomitant]
  11. DEXAMETHASONE [Concomitant]

REACTIONS (2)
  - DYSPNOEA [None]
  - PNEUMONITIS [None]
